FAERS Safety Report 24213441 (Version 1)
Quarter: 2024Q3

REPORT INFORMATION
  Report Type: Spontaneous
  Country: US (occurrence: None)
  Receive Date: 20240815
  Receipt Date: 20240815
  Transmission Date: 20241017
  Serious: Yes (Hospitalization)
  Sender: Public
  Company Number: None

PATIENT
  Sex: Female
  Weight: 81 kg

DRUGS (9)
  1. FLUOROURACIL [Suspect]
     Active Substance: FLUOROURACIL
     Dates: end: 20240725
  2. IRINOTECAN [Suspect]
     Active Substance: IRINOTECAN
     Dates: end: 20240725
  3. LEUCOVORIN CALCIUM [Suspect]
     Active Substance: LEUCOVORIN CALCIUM
     Dates: end: 20240725
  4. NIVOLUMAB [Suspect]
     Active Substance: NIVOLUMAB
     Dates: end: 20240725
  5. OXALIPLATIN [Suspect]
     Active Substance: OXALIPLATIN
     Dates: end: 20240725
  6. IRINOTECAN [Suspect]
     Active Substance: IRINOTECAN
     Dates: end: 20240725
  7. LEUCOVORIN CALCIUM [Suspect]
     Active Substance: LEUCOVORIN CALCIUM
     Dates: end: 20240725
  8. NIVOLUMAB [Suspect]
     Active Substance: NIVOLUMAB
     Dates: end: 20240725
  9. OXALIPLATIN [Suspect]
     Active Substance: OXALIPLATIN
     Dates: end: 20240725

REACTIONS (3)
  - Nausea [None]
  - Vomiting [None]
  - Embolism [None]
